FAERS Safety Report 7503650-9 (Version None)
Quarter: 2011Q1

REPORT INFORMATION
  Report Type: 
  Country: None (occurrence: None)
  Receive Date: 20110325
  Receipt Date: 20101122
  Transmission Date: 20110831
  Serious: Yes (Hospitalization)
  Sender: FDA-Public Use
  Company Number: JHP201000354

PATIENT
  Age: 36 Year
  Sex: Female
  Weight: 69.8 kg

DRUGS (10)
  1. MIDAZOLAM HYDROCHLORIDE [Suspect]
     Dosage: 5 MG, INTRAVENOUS
     Route: 042
     Dates: start: 20100923
  2. DECADRON [Suspect]
     Dosage: 8 MG, INTRAVENOUS
     Route: 042
     Dates: start: 20100923
  3. LIDOCAINE [Suspect]
     Dosage: 108 MG
     Dates: start: 20100923
  4. KETALAR [Suspect]
     Indication: SEDATIVE THERAPY
     Dosage: 40 MG, INTRAVENOUS
     Route: 042
     Dates: start: 20100101, end: 20100920
  5. KETALAR [Suspect]
     Indication: SEDATIVE THERAPY
     Dosage: 40 MG, INTRAVENOUS
     Route: 042
     Dates: start: 20100923
  6. FENTANYL CITRATE [Suspect]
     Dosage: 100 MCG, INTRAVENOUS, 25 MCG, INTRAVENOUS
     Route: 042
     Dates: start: 20100923
  7. FENTANYL CITRATE [Suspect]
     Dosage: 100 MCG, INTRAVENOUS, 25 MCG, INTRAVENOUS
     Route: 042
     Dates: start: 20100923
  8. GLYCOPYRRONIUM BROMIDE (GLYCOPYRRONIUM BROMIDE) [Suspect]
     Dosage: 0.4 MG, INTRAVENOUS
     Route: 042
     Dates: start: 20100923
  9. MERIDIA [Suspect]
     Indication: WEIGHT DECREASED
     Dosage: 10 MG, DAILY
     Dates: start: 20100101, end: 20100920
  10. BUTALBITAL AND ASPIRIN [Suspect]
     Dates: end: 20100920

REACTIONS (2)
  - GRAND MAL CONVULSION [None]
  - PARTIAL SEIZURES [None]
